FAERS Safety Report 5876121 (Version 4)
Quarter: 2020Q3

REPORT INFORMATION
  Report Type: Report from Study
  Country: US (occurrence: US)
  Receive Date: 20050912
  Receipt Date: 20051101
  Transmission Date: 20201104
  Serious: Yes (Other)
  Sender: FDA-Public Use
  Company Number: US-JNJFOC-20050901726

PATIENT
  Age: 11 Year
  Sex: Female
  Weight: 32.1 kg

DRUGS (21)
  1. CISAPRIDE [Suspect]
     Active Substance: CISAPRIDE
     Route: 048
  2. BUDESONIDE. [Concomitant]
     Active Substance: BUDESONIDE
     Indication: ASTHMA
  3. ELIDEL [Concomitant]
     Active Substance: PIMECROLIMUS
     Indication: DERMATITIS
  4. CARAFATE [Concomitant]
     Active Substance: SUCRALFATE
     Route: 048
  5. CISAPRIDE [Suspect]
     Active Substance: CISAPRIDE
     Route: 048
  6. ENBREL [Concomitant]
     Active Substance: ETANERCEPT
     Dosage: ONCE A WEEK
  7. CISAPRIDE [Suspect]
     Active Substance: CISAPRIDE
     Route: 048
  8. ALBUTEROL. [Concomitant]
     Active Substance: ALBUTEROL
     Indication: ASTHMA
     Route: 055
  9. BENADRYL [Concomitant]
     Active Substance: DIPHENHYDRAMINE HYDROCHLORIDE
     Indication: NAUSEA
  10. DEPACON [Concomitant]
     Active Substance: VALPROATE SODIUM
     Indication: MIGRAINE
  11. CISAPRIDE [Suspect]
     Active Substance: CISAPRIDE
     Dosage: 4.4 MG 4 TIMES DAILY
     Route: 048
  12. CISAPRIDE [Suspect]
     Active Substance: CISAPRIDE
     Route: 048
  13. KYTRIL [Concomitant]
     Active Substance: GRANISETRON HYDROCHLORIDE
     Indication: NAUSEA
  14. NASACORT AQ [Concomitant]
     Active Substance: TRIAMCINOLONE ACETONIDE
     Route: 055
  15. BOTOX [Concomitant]
     Active Substance: ONABOTULINUMTOXINA
     Indication: MIGRAINE
  16. METHOTREXATE. [Concomitant]
     Active Substance: METHOTREXATE
     Route: 058
  17. SINGULAIR [Concomitant]
     Active Substance: MONTELUKAST SODIUM
     Indication: ASTHMA
     Route: 048
  18. DECADRON [Concomitant]
     Active Substance: DEXAMETHASONE
     Indication: MIGRAINE
  19. INDOMETHECIN [Concomitant]
     Indication: MIGRAINE
  20. NEXIUM [Concomitant]
     Active Substance: ESOMEPRAZOLE MAGNESIUM
  21. REGLAN [Concomitant]
     Active Substance: METOCLOPRAMIDE HYDROCHLORIDE
     Indication: MIGRAINE

REACTIONS (1)
  - Electrocardiogram QT prolonged [Recovered/Resolved]

NARRATIVE: CASE EVENT DATE: 20050613
